FAERS Safety Report 7199536-2 (Version None)
Quarter: 2010Q4

REPORT INFORMATION
  Report Type: 
  Country: None (occurrence: None)
  Receive Date: 20101228
  Receipt Date: 20101215
  Transmission Date: 20110411
  Serious: Yes (Other)
  Sender: FDA-Public Use
  Company Number: PHHY2010NL85346

PATIENT
  Sex: Male

DRUGS (3)
  1. ZOMETA [Suspect]
     Indication: PROSTATE CANCER METASTATIC
     Dosage: 4MG/5ML
     Dates: start: 20100707
  2. ZOMETA [Suspect]
     Dosage: 4MG/5ML
     Dates: start: 20101102
  3. ZOMETA [Suspect]
     Dosage: 4MG/5ML
     Dates: start: 20101202

REACTIONS (2)
  - JAW DISORDER [None]
  - PAIN IN JAW [None]
